FAERS Safety Report 16351990 (Version 1)
Quarter: 2019Q3

REPORT INFORMATION
  Report Type: Spontaneous
  Country: US (occurrence: US)
  Receive Date: 20190523
  Receipt Date: 20190523
  Transmission Date: 20191004
  Serious: No
  Sender: FDA-Public Use
  Company Number: None

PATIENT
  Age: 73 Year
  Sex: Male

DRUGS (15)
  1. SMZ/TMP [Concomitant]
     Active Substance: SULFAMETHOXAZOLE\TRIMETHOPRIM
  2. TACROLIMUS. [Suspect]
     Active Substance: TACROLIMUS
     Indication: RENAL TRANSPLANT
     Route: 049
     Dates: start: 20181213
  3. ASPIRIN. [Concomitant]
     Active Substance: ASPIRIN
  4. MULTIVITAMIN [Concomitant]
     Active Substance: VITAMINS
  5. COLACE [Concomitant]
     Active Substance: DOCUSATE SODIUM
  6. PROGRAF [Concomitant]
     Active Substance: TACROLIMUS\TACROLIMUS ANHYDROUS
  7. LEXAPRO [Concomitant]
     Active Substance: ESCITALOPRAM OXALATE
  8. OYST-CAL [Concomitant]
  9. CELLCEPT [Suspect]
     Active Substance: MYCOPHENOLATE MOFETIL\MYCOPHENOLATE MOFETIL HYDROCHLORIDE
     Indication: RENAL TRANSPLANT
     Route: 048
     Dates: start: 20060310
  10. MAGOX [Concomitant]
  11. LANOXIN [Concomitant]
     Active Substance: DIGOXIN
  12. STOOL SOFT [Concomitant]
  13. BACTRIM [Concomitant]
     Active Substance: SULFAMETHOXAZOLE\TRIMETHOPRIM
  14. MAG OXIDE [Concomitant]
     Active Substance: MAGNESIUM OXIDE
  15. FERROUS GLUC [Concomitant]

REACTIONS (4)
  - Dementia [None]
  - Myocardial infarction [None]
  - Thyroid disorder [None]
  - Amnesia [None]

NARRATIVE: CASE EVENT DATE: 20190522
